FAERS Safety Report 9686113 (Version 1)
Quarter: 2013Q4

REPORT INFORMATION
  Report Type: Spontaneous
  Country: DE (occurrence: DE)
  Receive Date: 20131113
  Receipt Date: 20131113
  Transmission Date: 20140711
  Serious: Yes (Hospitalization)
  Sender: FDA-Public Use
  Company Number: PHHY2013DE128971

PATIENT
  Sex: Male

DRUGS (2)
  1. EXTAVIA [Suspect]
     Indication: MULTIPLE SCLEROSIS
     Dosage: UNK UKN, UNK
     Route: 058
     Dates: start: 2009
  2. EXTAVIA [Suspect]
     Dosage: 250 UG, QOD
     Route: 058

REACTIONS (5)
  - Influenza [Unknown]
  - Pyrexia [Unknown]
  - Syncope [Unknown]
  - Fall [Unknown]
  - Upper limb fracture [Unknown]
